FAERS Safety Report 11837654 (Version 1)
Quarter: 2015Q4

REPORT INFORMATION
  Report Type: Spontaneous
  Country: JP (occurrence: JP)
  Receive Date: 20151215
  Receipt Date: 20151215
  Transmission Date: 20160305
  Serious: Yes (Death)
  Sender: FDA-Public Use
  Company Number: JP-BAXTER-2015BAX067786

PATIENT
  Age: 9 Year
  Sex: Male

DRUGS (19)
  1. TEMOZOLOMIDE. [Suspect]
     Active Substance: TEMOZOLOMIDE
     Indication: RECURRENT CANCER
     Route: 065
  2. TEMOZOLOMIDE. [Suspect]
     Active Substance: TEMOZOLOMIDE
     Indication: SECOND PRIMARY MALIGNANCY
  3. CDDP [Suspect]
     Active Substance: CISPLATIN
     Indication: SECOND PRIMARY MALIGNANCY
  4. NAVELBINE [Suspect]
     Active Substance: VINORELBINE TARTRATE
     Indication: RECURRENT CANCER
     Route: 065
  5. VP-16 [Suspect]
     Active Substance: ETOPOSIDE
     Indication: RECURRENT CANCER
     Route: 065
  6. IFEX [Suspect]
     Active Substance: IFOSFAMIDE
     Indication: RECURRENT CANCER
     Route: 065
  7. IFEX [Suspect]
     Active Substance: IFOSFAMIDE
     Indication: SECOND PRIMARY MALIGNANCY
  8. METHOTREXATE [Suspect]
     Active Substance: METHOTREXATE
     Indication: SECOND PRIMARY MALIGNANCY
  9. PIRARUBICIN [Suspect]
     Active Substance: PIRARUBICIN
     Indication: RECURRENT CANCER
     Route: 065
  10. TOPOTECAN [Suspect]
     Active Substance: TOPOTECAN\TOPOTECAN HYDROCHLORIDE
     Indication: SECOND PRIMARY MALIGNANCY
  11. VP-16 [Suspect]
     Active Substance: ETOPOSIDE
     Indication: SECOND PRIMARY MALIGNANCY
  12. CDDP [Suspect]
     Active Substance: CISPLATIN
     Indication: RECURRENT CANCER
     Route: 065
  13. ENDOXAN 1G [Suspect]
     Active Substance: CYCLOPHOSPHAMIDE
     Indication: SECOND PRIMARY MALIGNANCY
     Route: 065
  14. ENDOXAN 1G [Suspect]
     Active Substance: CYCLOPHOSPHAMIDE
     Indication: RECURRENT CANCER
  15. METHOTREXATE [Suspect]
     Active Substance: METHOTREXATE
     Indication: RECURRENT CANCER
     Route: 065
  16. NAVELBINE [Suspect]
     Active Substance: VINORELBINE TARTRATE
     Indication: SECOND PRIMARY MALIGNANCY
  17. TOPOTECAN [Suspect]
     Active Substance: TOPOTECAN\TOPOTECAN HYDROCHLORIDE
     Indication: RECURRENT CANCER
     Route: 065
  18. NAVELBINE [Suspect]
     Active Substance: VINORELBINE TARTRATE
     Indication: OFF LABEL USE
  19. PIRARUBICIN [Suspect]
     Active Substance: PIRARUBICIN
     Indication: SECOND PRIMARY MALIGNANCY

REACTIONS (2)
  - Osteosarcoma [Fatal]
  - Astrocytoma [Fatal]
